FAERS Safety Report 7908728-3 (Version None)
Quarter: 2011Q4

REPORT INFORMATION
  Report Type: 
  Country: None (occurrence: None)
  Receive Date: 20111111
  Receipt Date: 20111107
  Transmission Date: 20120403
  Serious: No
  Sender: FDA-Public Use
  Company Number: US-PFIZER INC-2011273091

PATIENT
  Sex: Male

DRUGS (1)
  1. XALKORI [Suspect]
     Indication: LUNG NEOPLASM MALIGNANT
     Dosage: 250 MG, 2X/DAY
     Dates: start: 20111024

REACTIONS (5)
  - CONSTIPATION [None]
  - WEIGHT INCREASED [None]
  - FLUID RETENTION [None]
  - BREATH SOUNDS ABNORMAL [None]
  - COUGH [None]
